FAERS Safety Report 17318451 (Version 2)
Quarter: 2020Q1

REPORT INFORMATION
  Report Type: Spontaneous
  Country: US (occurrence: US)
  Receive Date: 20200124
  Receipt Date: 20200221
  Transmission Date: 20200409
  Serious: Yes (Hospitalization)
  Sender: FDA-Public Use
  Company Number: US-VERTEX PHARMACEUTICALS-2020-001041

PATIENT
  Age: 35 Year
  Sex: Female
  Weight: 48 kg

DRUGS (7)
  1. GLUCAGON. [Concomitant]
     Active Substance: GLUCAGON
     Dosage: 1MG VIAL
  2. TRIKAFTA [Suspect]
     Active Substance: ELEXACAFTOR\IVACAFTOR\TEZACAFTOR
     Indication: CYSTIC FIBROSIS
     Dosage: 2 TABLETS (100/50/75 MG) AM AND 150 MG PM
     Route: 048
     Dates: start: 20191227
  3. LEVOTHYROXINE. [Concomitant]
     Active Substance: LEVOTHYROXINE
     Dosage: 25 MICROGRAM
  4. ENOXAPARIN SODIUM. [Concomitant]
     Active Substance: ENOXAPARIN SODIUM
     Dosage: 60MG/0.6ML SYRINGE
  5. LEVEMIR [Concomitant]
     Active Substance: INSULIN DETEMIR
     Dosage: 100/ML (3) INSULIN PEN
  6. HUMALOG [Concomitant]
     Active Substance: INSULIN LISPRO
     Dosage: 100/ML INS PEN HF
  7. GLUCAGON. [Concomitant]
     Active Substance: GLUCAGON
     Dosage: 3 MG

REACTIONS (1)
  - Faecaloma [Unknown]

NARRATIVE: CASE EVENT DATE: 202001
